FAERS Safety Report 7403056-7 (Version None)
Quarter: 2011Q1

REPORT INFORMATION
  Report Type: 
  Country: None (occurrence: None)
  Receive Date: 20110316
  Receipt Date: 20110304
  Transmission Date: 20110831
  Serious: Yes (Hospitalization)
  Sender: FDA-Public Use
  Company Number: AEUSA201100043

PATIENT
  Age: 68 Year
  Sex: Male

DRUGS (20)
  1. AVODART [Concomitant]
  2. FLONASE [Concomitant]
  3. HYCOMINE [Concomitant]
  4. LORATADINE [Concomitant]
  5. TRAZODONE HCL [Concomitant]
  6. REQUIP [Concomitant]
  7. SERTRALINE HYDROCHLORIDE [Concomitant]
  8. COMBIVENT [Concomitant]
  9. DILAUDID [Concomitant]
  10. IBUPROFEN [Concomitant]
  11. PRILOSEC [Concomitant]
  12. COMPAZINE [Concomitant]
  13. PROLASTIN-C [Suspect]
     Indication: ALPHA-1 ANTI-TRYPSIN DEFICIENCY
     Dosage: 8996 MG; QOW; IV
     Route: 042
     Dates: start: 20100501
  14. ALPRAZOLAM [Concomitant]
  15. OXYCODONE HCL [Concomitant]
  16. ASPIRIN [Concomitant]
  17. VITAMIN D [Concomitant]
  18. DOCUSATE [Concomitant]
  19. OXYCONTIN [Concomitant]
  20. FLOMAX [Concomitant]

REACTIONS (1)
  - PNEUMONIA [None]
